FAERS Safety Report 7375692-8 (Version None)
Quarter: 2011Q1

REPORT INFORMATION
  Report Type: 
  Country: None (occurrence: None)
  Receive Date: 20110325
  Receipt Date: 20110316
  Transmission Date: 20110831
  Serious: Yes (Hospitalization)
  Sender: FDA-Public Use
  Company Number: JP-ROCHE-710718

PATIENT
  Sex: Female
  Weight: 59 kg

DRUGS (54)
  1. AVASTIN [Suspect]
     Route: 041
     Dates: start: 20100317, end: 20100519
  2. FLUOROURACIL [Concomitant]
     Route: 042
     Dates: start: 20100203, end: 20100519
  3. CAMPTOSAR [Concomitant]
     Dates: start: 20100203, end: 20100519
  4. OXYCONTIN [Concomitant]
     Route: 048
     Dates: start: 20100317, end: 20100406
  5. OXYCONTIN [Concomitant]
     Route: 048
     Dates: start: 20100619, end: 20100623
  6. MUCOSTA [Concomitant]
     Route: 048
     Dates: start: 20100302, end: 20100306
  7. ETODOLAC [Concomitant]
     Route: 048
     Dates: start: 20100521, end: 20100609
  8. PURSENNID [Concomitant]
     Route: 048
     Dates: start: 20100317, end: 20100325
  9. OXINORM [Concomitant]
     Route: 048
     Dates: start: 20100519, end: 20100615
  10. LOXONIN [Concomitant]
     Route: 048
     Dates: start: 20091215, end: 20091224
  11. KYTRIL [Suspect]
     Indication: VOMITING
     Route: 042
     Dates: start: 20090207, end: 20090829
  12. ELPLAT [Concomitant]
     Route: 042
     Dates: start: 20091125, end: 20100120
  13. ISOVORIN [Concomitant]
     Route: 042
     Dates: start: 20091125, end: 20100120
  14. ISOVORIN [Concomitant]
     Route: 042
     Dates: start: 20100203, end: 20100519
  15. GASTER D [Concomitant]
     Route: 048
     Dates: start: 20100521, end: 20100619
  16. ETODOLAC [Concomitant]
     Route: 048
     Dates: start: 20100310, end: 20100519
  17. MAGNESIUM OXIDE [Concomitant]
     Dosage: DOSE FORM: PERORAL AGENT, DOSAGE IS UNCERTAIN.
     Route: 048
     Dates: start: 20100428, end: 20100623
  18. LOXONIN [Concomitant]
     Route: 048
     Dates: start: 20100619, end: 20100623
  19. AVASTIN [Suspect]
     Indication: RECTAL CANCER METASTATIC
     Dosage: DOSE FORM: INJECTION
     Route: 041
     Dates: start: 20091125, end: 20100101
  20. ISOVORIN [Concomitant]
     Route: 042
     Dates: start: 20091027, end: 20091113
  21. MUCOSTA [Concomitant]
     Route: 048
     Dates: start: 20100105, end: 20100114
  22. MUCOSTA [Concomitant]
     Route: 048
     Dates: start: 20100120, end: 20100131
  23. OXYCONTIN [Concomitant]
     Route: 048
     Dates: start: 20100518, end: 20100519
  24. OXINORM [Concomitant]
     Route: 048
     Dates: start: 20100613, end: 20100615
  25. LOXONIN [Concomitant]
     Route: 048
     Dates: start: 20100120, end: 20100131
  26. LOXONIN [Concomitant]
     Route: 048
     Dates: start: 20100302, end: 20100306
  27. KYTRIL [Suspect]
     Route: 042
     Dates: start: 20091027, end: 20091113
  28. ELPLAT [Concomitant]
     Route: 042
     Dates: start: 20091027, end: 20091113
  29. GASTER D [Concomitant]
     Route: 048
     Dates: start: 20100310, end: 20100519
  30. OXYCONTIN [Concomitant]
     Route: 048
     Dates: start: 20100520, end: 20100520
  31. OXYCONTIN [Concomitant]
     Route: 048
     Dates: start: 20100521, end: 20100609
  32. OXINORM [Concomitant]
     Route: 048
     Dates: start: 20100608, end: 20100612
  33. MAGNESIUM OXIDE [Concomitant]
     Dosage: DOSE FORM: PERORAL AGENT, DOSAGE IS UNCERTAIN.
     Route: 048
     Dates: start: 20100420, end: 20100426
  34. LOXONIN [Concomitant]
     Route: 048
     Dates: start: 20100105, end: 20100114
  35. KYTRIL [Suspect]
     Route: 042
     Dates: start: 20091127, end: 20100120
  36. FLUOROURACIL [Concomitant]
     Route: 042
     Dates: start: 20091125, end: 20100120
  37. PURSENNID [Concomitant]
     Route: 048
     Dates: start: 20100409, end: 20100429
  38. OXINORM [Concomitant]
     Route: 048
     Dates: start: 20100317, end: 20100401
  39. OXINORM [Concomitant]
     Route: 048
     Dates: start: 20100407, end: 20100418
  40. OXINORM [Concomitant]
     Route: 048
     Dates: start: 20100619, end: 20100623
  41. LAC-B [Concomitant]
     Route: 048
     Dates: start: 20100420, end: 20100426
  42. LOXONIN [Concomitant]
     Route: 048
     Dates: start: 20100205, end: 20100209
  43. KYTRIL [Suspect]
     Route: 042
     Dates: start: 20100203, end: 20100519
  44. FLUOROURACIL [Concomitant]
     Route: 042
     Dates: start: 20091027, end: 20091113
  45. MUCOSTA [Concomitant]
     Route: 048
     Dates: start: 20100619, end: 20100623
  46. OXYCONTIN [Concomitant]
     Route: 048
     Dates: start: 20100406, end: 20100517
  47. NOVAMIN [Concomitant]
     Route: 048
     Dates: start: 20100317, end: 20100519
  48. LAC-B [Concomitant]
     Dosage: MINUTE  GRAIN
     Route: 048
     Dates: start: 20100428, end: 20100623
  49. MUCOSTA [Concomitant]
     Route: 048
     Dates: start: 20091215, end: 20091224
  50. MUCOSTA [Concomitant]
     Route: 048
     Dates: start: 20100205, end: 20100209
  51. MUCOSTA [Concomitant]
     Route: 048
     Dates: start: 20100309, end: 20100319
  52. ETODOLAC [Concomitant]
     Route: 048
     Dates: start: 20100619, end: 20100623
  53. MYSLEE [Concomitant]
     Route: 049
     Dates: start: 20100619, end: 20100623
  54. LOXONIN [Concomitant]
     Route: 048
     Dates: start: 20100309, end: 20100319

REACTIONS (3)
  - LARGE INTESTINE PERFORATION [None]
  - CONSTIPATION [None]
  - HYPERTENSION [None]
